FAERS Safety Report 13445561 (Version 1)
Quarter: 2017Q2

REPORT INFORMATION
  Report Type: Spontaneous
  Country: US (occurrence: US)
  Receive Date: 20170415
  Receipt Date: 20170415
  Transmission Date: 20170830
  Serious: No
  Sender: FDA-Public Use
  Company Number: US-BION-005856

PATIENT
  Age: 63 Year
  Sex: Female
  Weight: 67 kg

DRUGS (1)
  1. ALEVE [Suspect]
     Active Substance: NAPROXEN SODIUM
     Indication: PAIN
     Dosage: ONE IN THE MORNING AND ONE IN THE EVENING
     Route: 048
     Dates: end: 20161220

REACTIONS (2)
  - Drug prescribing error [Not Recovered/Not Resolved]
  - Product use issue [Not Recovered/Not Resolved]
